FAERS Safety Report 18987150 (Version 1)
Quarter: 2021Q1

REPORT INFORMATION
  Report Type: Spontaneous
  Country: US (occurrence: US)
  Receive Date: 20210309
  Receipt Date: 20210309
  Transmission Date: 20210420
  Serious: No
  Sender: FDA-Public Use
  Company Number: None

PATIENT
  Sex: Male

DRUGS (4)
  1. HUMIRA [Suspect]
     Active Substance: ADALIMUMAB
     Indication: RHEUMATOID ARTHRITIS
     Route: 058
     Dates: start: 20210115
  2. TRAMADOL 50MG [Concomitant]
     Active Substance: TRAMADOL
     Dosage: ?          OTHER DOSE:1 TABLET;OTHER FREQUENCY:AS NEEDED;?
  3. METHOTREXATE 2.5MG [Concomitant]
     Active Substance: METHOTREXATE
     Dosage: ?          OTHER DOSE:7 TABLET;OTHER ROUTE:OTHER?
  4. FOLIC ACID 1 MG [Concomitant]

REACTIONS (3)
  - Device leakage [None]
  - Drug dose omission by device [None]
  - Injection site pain [None]
